FAERS Safety Report 6657108-X (Version None)
Quarter: 2010Q1

REPORT INFORMATION
  Report Type: 
  Country: None (occurrence: None)
  Receive Date: 20100330
  Receipt Date: 20100322
  Transmission Date: 20100710
  Serious: Yes (Other)
  Sender: FDA-Public Use
  Company Number: NL-JNJFOC-20100306167

PATIENT
  Sex: Male

DRUGS (2)
  1. REMINYL [Suspect]
     Indication: DEMENTIA ALZHEIMER'S TYPE
     Route: 065
  2. REMINYL [Suspect]
     Route: 065

REACTIONS (3)
  - ARRHYTHMIA [None]
  - BRADYCARDIA [None]
  - BUNDLE BRANCH BLOCK [None]
